FAERS Safety Report 4695229-1 (Version None)
Quarter: 2005Q2

REPORT INFORMATION
  Report Type: 
  Country: None (occurrence: None)
  Receive Date: 20050614
  Receipt Date: 20050218
  Transmission Date: 20051028
  Serious: No
  Sender: FDA-Public Use
  Company Number: USA041080480

PATIENT
  Age: 60 Year
  Sex: Male
  Weight: 86 kg

DRUGS (1)
  1. CIALIS [Suspect]
     Indication: ERECTILE DYSFUNCTION
     Dosage: 20 MG
     Dates: start: 20040301, end: 20040301

REACTIONS (5)
  - CONDUCTIVE DEAFNESS [None]
  - DEAFNESS TRAUMATIC [None]
  - DRUG INEFFECTIVE [None]
  - EUSTACHIAN TUBE DYSFUNCTION [None]
  - OTITIS MEDIA [None]
